FAERS Safety Report 8230198-9 (Version None)
Quarter: 2012Q1

REPORT INFORMATION
  Report Type: 
  Country: None (occurrence: None)
  Receive Date: 20120321
  Receipt Date: 20120321
  Transmission Date: 20120608
  Serious: No
  Sender: FDA-Public Use
  Company Number: None

PATIENT
  Sex: Male
  Weight: 76.6579 kg

DRUGS (1)
  1. GABAPENTIN [Suspect]
     Indication: EPILEPSY
     Dosage: 1200MG 4X/DAY PO  PT HAS BEEN ON BRAND SINCE 1999
     Route: 048
     Dates: start: 19990101

REACTIONS (3)
  - PRODUCT SUBSTITUTION ISSUE [None]
  - CONVULSION [None]
  - CONDITION AGGRAVATED [None]
